FAERS Safety Report 15167193 (Version 1)
Quarter: 2018Q3

REPORT INFORMATION
  Report Type: Spontaneous
  Country: US (occurrence: US)
  Receive Date: 20180621
  Receipt Date: 20180621
  Transmission Date: 20181010
  Serious: Yes (Hospitalization)
  Sender: FDA-Public Use
  Company Number: None

PATIENT
  Age: 85 Year
  Sex: Female

DRUGS (7)
  1. ALPRAZOLAM. [Concomitant]
     Active Substance: ALPRAZOLAM
  2. LABETALOL [Concomitant]
     Active Substance: LABETALOL\LABETALOL HYDROCHLORIDE
  3. XOLAIR [Suspect]
     Active Substance: OMALIZUMAB
     Indication: URTICARIA CHRONIC
     Dosage: OTHER FREQUENCY:EVERY 4 WKS;OTHER ROUTE:UNDER THE SKIN?
     Dates: start: 20171031, end: 201806
  4. RANITIDINE. [Concomitant]
     Active Substance: RANITIDINE
  5. LOSARTAN. [Concomitant]
     Active Substance: LOSARTAN
  6. OXCARBAZEPIN [Concomitant]
     Active Substance: OXCARBAZEPINE
  7. AMLODIPINE [Concomitant]
     Active Substance: AMLODIPINE BESYLATE

REACTIONS (3)
  - Pruritus [None]
  - Burning sensation [None]
  - Drug ineffective [None]

NARRATIVE: CASE EVENT DATE: 20180619
